FAERS Safety Report 5222895-4 (Version None)
Quarter: 2007Q1

REPORT INFORMATION
  Report Type: 
  Country: None (occurrence: None)
  Receive Date: 20070123
  Receipt Date: 20070115
  Transmission Date: 20070707
  Serious: Yes (Hospitalization, Disabling)
  Sender: FDA-Public Use
  Company Number: FRWYE193917JAN07

PATIENT
  Age: 71 Year
  Sex: Female

DRUGS (7)
  1. EFFEXOR [Suspect]
     Dosage: OVERDOSE AMOUNT: 90 TABLETS ORAL
     Route: 048
  2. IMOVANE (ZOPICLONE, , 0) [Suspect]
     Dosage: OVERDOSE AMOUNT: 14 TABLETS ORAL
     Route: 048
  3. OXAZEPAM [Suspect]
     Dosage: OVERDOSE AMOUNT: 50 TABLETS ORAL
     Route: 048
  4. LITHIUM CARBONATE [Suspect]
     Dosage: OVERDOSE AMOUNT: 107 TABLETS ORAL
     Route: 048
  5. TERCIAN (CYAMEMAZINE, , 0) [Suspect]
     Dosage: ORAL
     Route: 048
  6. XANAX [Suspect]
     Dosage: OVERDOSE AMOUNT: 90 TABLETS ORAL
     Route: 048
  7. PHENOBARBITAL TAB [Concomitant]

REACTIONS (12)
  - BLOOD CREATININE INCREASED [None]
  - COMA [None]
  - DEHYDRATION [None]
  - DIARRHOEA [None]
  - DISSEMINATED INTRAVASCULAR COAGULATION [None]
  - HYPOTENSION [None]
  - OVERDOSE [None]
  - OXYGEN SATURATION DECREASED [None]
  - POLYNEUROPATHY [None]
  - STATUS EPILEPTICUS [None]
  - THROMBOCYTOPENIA [None]
  - VOMITING [None]
